FAERS Safety Report 4334718-6 (Version None)
Quarter: 2004Q2

REPORT INFORMATION
  Report Type: 
  Country: None (occurrence: None)
  Receive Date: 20040407
  Receipt Date: 20040407
  Transmission Date: 20050107
  Serious: Yes (Hospitalization)
  Sender: FDA-Public Use
  Company Number: None

PATIENT
  Sex: Male
  Weight: 75.7507 kg

DRUGS (10)
  1. GEMCITABINE [Suspect]
     Indication: PANCREATIC CARCINOMA
     Dosage: 1000MG/M2 QW X7 INTRAVENOUS
     Route: 042
     Dates: start: 20040219, end: 20040330
  2. DILAUDID [Concomitant]
  3. ACROPRIL [Concomitant]
  4. ATENOLOL [Concomitant]
  5. GLUCOTROL [Concomitant]
  6. LIPREM [Concomitant]
  7. COMPAZINE [Concomitant]
  8. SOFRAN [Concomitant]
  9. OXYCONTIN [Concomitant]
  10. LEXOPRIL [Concomitant]

REACTIONS (1)
  - DEEP VEIN THROMBOSIS [None]
